FAERS Safety Report 24456422 (Version 2)
Quarter: 2024Q4

REPORT INFORMATION
  Report Type: Report from Study
  Country: US (occurrence: US)
  Receive Date: 20241017
  Receipt Date: 20241018
  Transmission Date: 20250114
  Serious: No
  Sender: ROCHE
  Company Number: US-ROCHE-3508357

PATIENT
  Age: 35 Year
  Sex: Male

DRUGS (6)
  1. RITUXAN [Suspect]
     Active Substance: RITUXIMAB
     Indication: Respiratory tract haemorrhage
     Dosage: THAN EVERY 6 MONTH
     Route: 041
  2. ATOVAQUONE [Concomitant]
     Active Substance: ATOVAQUONE
  3. CARVEDILOL [Concomitant]
     Active Substance: CARVEDILOL
  4. NIFEDIPINE [Concomitant]
     Active Substance: NIFEDIPINE
  5. PREDNISONE [Concomitant]
     Active Substance: PREDNISONE
  6. INSULIN NOS [Concomitant]
     Active Substance: INSULIN NOS

REACTIONS (2)
  - Off label use [Unknown]
  - No adverse event [Unknown]
